FAERS Safety Report 5537387-2 (Version None)
Quarter: 2007Q4

REPORT INFORMATION
  Report Type: 
  Country: None (occurrence: None)
  Receive Date: 20071207
  Receipt Date: 20071128
  Transmission Date: 20080405
  Serious: Yes (Death, Congenital Anomaly)
  Sender: FDA-Public Use
  Company Number: B0442951A

PATIENT
  Age: 1 Day
  Sex: Male
  Weight: 2.5 kg

DRUGS (2)
  1. LAMICTAL [Suspect]
     Indication: EPILEPSY
     Dosage: 100MG PER DAY
     Dates: end: 20060821
  2. SPECIAFOLDINE [Concomitant]
     Indication: PROPHYLAXIS
     Dates: start: 20060101, end: 20060301

REACTIONS (11)
  - BONE DEVELOPMENT ABNORMAL [None]
  - CARDIAC ARREST [None]
  - CARDIOPULMONARY FAILURE [None]
  - DRUG EXPOSURE DURING PREGNANCY [None]
  - EMPHYSEMA [None]
  - LYMPHANGIECTASIA [None]
  - MULTI-ORGAN FAILURE [None]
  - PLEURAL EFFUSION [None]
  - PULMONARY HYPOPLASIA [None]
  - PULMONARY MALFORMATION [None]
  - VASCULAR ANOMALY [None]
